FAERS Safety Report 7923706-6 (Version None)
Quarter: 2011Q4

REPORT INFORMATION
  Report Type: 
  Country: None (occurrence: None)
  Receive Date: 20111117
  Receipt Date: 20100702
  Transmission Date: 20120403
  Serious: Yes (Other)
  Sender: FDA-Public Use
  Company Number: PHHY2010TW19921

PATIENT
  Sex: Female

DRUGS (5)
  1. GLEEVEC [Suspect]
     Dates: start: 20100501
  2. TASIGNA [Suspect]
     Dosage: 400 MG, UNK
     Route: 048
  3. TASIGNA [Suspect]
     Indication: CHRONIC MYELOID LEUKAEMIA
     Dosage: 800 MG, UNK
     Route: 048
     Dates: start: 20101101
  4. TASIGNA [Suspect]
     Dosage: 800 MG, UNK
  5. GLEEVEC [Suspect]
     Indication: CHRONIC MYELOID LEUKAEMIA
     Dosage: 400 MG, UNK
     Route: 048
     Dates: start: 20100501

REACTIONS (9)
  - VOMITING [None]
  - DISCOMFORT [None]
  - RASH [None]
  - NAUSEA [None]
  - NASOPHARYNGITIS [None]
  - SKIN EXFOLIATION [None]
  - PYREXIA [None]
  - ASTHENIA [None]
  - WHITE BLOOD CELL COUNT DECREASED [None]
